FAERS Safety Report 16481905 (Version 2)
Quarter: 2019Q2

REPORT INFORMATION
  Report Type: Spontaneous
  Country: NL (occurrence: NL)
  Receive Date: 20190627
  Receipt Date: 20190628
  Transmission Date: 20190711
  Serious: Yes (Other)
  Sender: FDA-Public Use
  Company Number: NL-TEVA-2019-NL-1068096

PATIENT
  Age: 21 Year
  Sex: Female

DRUGS (5)
  1. TOPIRAMATE. [Suspect]
     Active Substance: TOPIRAMATE
     Indication: MIGRAINE
     Dosage: 100 MILLIGRAM DAILY;
     Route: 065
  2. CANDESARTAN. [Suspect]
     Active Substance: CANDESARTAN
     Indication: MIGRAINE
     Dosage: MAX 16 MG, HIGHER IN DOSES NOT POSSIBLE
     Route: 065
  3. SANDOMIGRAN [Suspect]
     Active Substance: PIZOTYLINE
     Indication: MIGRAINE
     Dosage: 3 MILLIGRAM DAILY;
     Route: 065
  4. PROPRANOLOL [Suspect]
     Active Substance: PROPRANOLOL HYDROCHLORIDE
     Indication: MIGRAINE
     Dosage: 40 MILLIGRAM DAILY;
     Route: 065
  5. CEFALY [Suspect]
     Active Substance: DEVICE
     Indication: MIGRAINE
     Route: 065

REACTIONS (4)
  - Syncope [Unknown]
  - Depressed mood [Unknown]
  - Treatment failure [Unknown]
  - Fatigue [Unknown]
